FAERS Safety Report 7796780-8 (Version None)
Quarter: 2011Q4

REPORT INFORMATION
  Report Type: 
  Country: None (occurrence: None)
  Receive Date: 20111003
  Receipt Date: 20110916
  Transmission Date: 20120403
  Serious: Yes (Hospitalization)
  Sender: FDA-Public Use
  Company Number: 2011SGN00201

PATIENT
  Age: 39 Year
  Sex: Male
  Weight: 91.9 kg

DRUGS (7)
  1. BLEOMYCIN SULFATE [Suspect]
  2. TRAMADOL HCL [Concomitant]
  3. BRENTUXIMAB VEDOTIN (BRENTUXIMAB VEDOTIN) INJECTION [Suspect]
     Indication: HODGKIN'S DISEASE
     Dosage: 1.2 MG/KG, Q 14D, INTRAVENOUS
     Route: 042
     Dates: start: 20110816, end: 20110830
  4. VINBLASTINE SULFATE [Suspect]
     Dosage: 6 MG/M2, Q14D, INTRAVENOUS
     Route: 042
     Dates: start: 20110816, end: 20110830
  5. ONDANSETRON [Concomitant]
  6. DOXORUBICIN HCL [Suspect]
     Dosage: 25 MG/M2, Q14D, INTRAVENOUS
     Route: 042
     Dates: start: 20110816, end: 20110830
  7. SENOKOT (SENNA ALEXANDRINA FRUIT) [Concomitant]

REACTIONS (7)
  - HYPOPHAGIA [None]
  - ABDOMINAL PAIN UPPER [None]
  - DIARRHOEA [None]
  - VOMITING [None]
  - ABDOMINAL PAIN [None]
  - INAPPROPRIATE ANTIDIURETIC HORMONE SECRETION [None]
  - DEHYDRATION [None]
